FAERS Safety Report 4676437-2 (Version None)
Quarter: 2005Q2

REPORT INFORMATION
  Report Type: 
  Country: None (occurrence: None)
  Receive Date: 20050527
  Receipt Date: 20050201
  Transmission Date: 20051028
  Serious: Yes (Hospitalization, Disabling)
  Sender: FDA-Public Use
  Company Number: US-MERCK-0502USA00228

PATIENT
  Age: 54 Year
  Sex: Female
  Weight: 118 kg

DRUGS (3)
  1. ZANTAC [Concomitant]
     Indication: DYSPEPSIA
     Route: 065
  2. VIOXX [Suspect]
     Indication: OSTEOARTHRITIS
     Route: 048
     Dates: start: 20000101, end: 20030115
  3. ESTROGENS (UNSPECIFIED) [Concomitant]
     Indication: MENOPAUSAL SYMPTOMS
     Route: 065

REACTIONS (4)
  - CEREBROVASCULAR ACCIDENT [None]
  - DEPRESSION [None]
  - EMOTIONAL DISTRESS [None]
  - UTERINE POLYP [None]
